FAERS Safety Report 18080798 (Version 1)
Quarter: 2020Q3

REPORT INFORMATION
  Report Type: Spontaneous
  Country: US (occurrence: US)
  Receive Date: 20200728
  Receipt Date: 20200728
  Transmission Date: 20201103
  Serious: No
  Sender: FDA-Public Use
  Company Number: US-BAYER-2020-152217

PATIENT
  Sex: Female

DRUGS (1)
  1. LEVONORGESTREL IUS [UNKNOWN] [Suspect]
     Active Substance: LEVONORGESTREL
     Dosage: UNSPECIFIED ?G PER DAY CONTINUOUSLY
     Route: 015

REACTIONS (3)
  - Procedural pain [None]
  - Device placement issue [None]
  - Adverse drug reaction [None]
